FAERS Safety Report 4654301-2 (Version None)
Quarter: 2005Q2

REPORT INFORMATION
  Report Type: 
  Country: None (occurrence: None)
  Receive Date: 20050404
  Receipt Date: 20041118
  Transmission Date: 20051028
  Serious: No
  Sender: FDA-Public Use
  Company Number: USA041183919

PATIENT
  Age: 45 Year
  Sex: Female
  Weight: 84 kg

DRUGS (8)
  1. PROZAC-ORAL (FLUOXETINE) (FLUOXETINE HYDROCHLORIDE) [Suspect]
  2. CYMBALTA [Suspect]
     Indication: DEPRESSION
     Dosage: 60 MG DAY
     Dates: start: 20041105
  3. PREVACID [Concomitant]
  4. B-50 [Concomitant]
  5. VITAMIN B6 [Concomitant]
  6. CALCIUM MAGNESIUM [Concomitant]
  7. VIT C TAB [Concomitant]
  8. VITAMIN D [Concomitant]

REACTIONS (8)
  - CHEST PAIN [None]
  - DIZZINESS [None]
  - FEELING ABNORMAL [None]
  - FEELING JITTERY [None]
  - HEADACHE [None]
  - NERVOUSNESS [None]
  - NIGHTMARE [None]
  - SUICIDAL IDEATION [None]
